FAERS Safety Report 14067160 (Version 1)
Quarter: 2017Q4

REPORT INFORMATION
  Report Type: Spontaneous
  Country: US (occurrence: US)
  Receive Date: 20171007
  Receipt Date: 20171007
  Transmission Date: 20180321
  Serious: Yes (Hospitalization, Other)
  Sender: FDA-Public Use
  Company Number: None

PATIENT
  Age: 66 Year
  Sex: Male
  Weight: 95.4 kg

DRUGS (9)
  1. PRISTIQ EXTENDED-RELEASE [Concomitant]
     Active Substance: DESVENLAFAXINE SUCCINATE
  2. IBUPROFEN. [Concomitant]
     Active Substance: IBUPROFEN
  3. VERAPAMIL [Concomitant]
     Active Substance: VERAPAMIL HYDROCHLORIDE
  4. OMEPRAZOLE. [Concomitant]
     Active Substance: OMEPRAZOLE
  5. VITAMIN [Concomitant]
     Active Substance: VITAMINS
  6. REXULTI [Suspect]
     Active Substance: BREXPIPRAZOLE
     Indication: DEPRESSION
     Dosage: ?          QUANTITY:28 TABLET(S);?
     Route: 048
     Dates: start: 20170804, end: 20170901
  7. METOPROLOL. [Concomitant]
     Active Substance: METOPROLOL
  8. SIMVISTATIN [Suspect]
     Active Substance: SIMVASTATIN
  9. ASPIRIN. [Concomitant]
     Active Substance: ASPIRIN

REACTIONS (1)
  - Gambling [None]

NARRATIVE: CASE EVENT DATE: 20170805
